FAERS Safety Report 19694861 (Version 2)
Quarter: 2021Q3

REPORT INFORMATION
  Report Type: Report from Study
  Country: US (occurrence: US)
  Receive Date: 20210812
  Receipt Date: 20210816
  Transmission Date: 20211014
  Serious: No
  Sender: FDA-Public Use
  Company Number: US-SUNOVION-2015SUN001429

PATIENT
  Sex: Female

DRUGS (1)
  1. BROVANA [Suspect]
     Active Substance: ARFORMOTEROL TARTRATE
     Dosage: 2 ML
     Route: 055

REACTIONS (4)
  - Dry mouth [Unknown]
  - Drug ineffective [Unknown]
  - Constipation [Unknown]
  - Insomnia [Unknown]
